FAERS Safety Report 19144457 (Version 2)
Quarter: 2021Q2

REPORT INFORMATION
  Report Type: Spontaneous
  Country: DE (occurrence: DE)
  Receive Date: 20210416
  Receipt Date: 20210616
  Transmission Date: 20210717
  Serious: Yes (Other)
  Sender: FDA-Public Use
  Company Number: DE-TEVA-2021-DE-1891798

PATIENT
  Age: 49 Year
  Sex: Female
  Weight: 68 kg

DRUGS (1)
  1. COPAXONE [Suspect]
     Active Substance: GLATIRAMER ACETATE
     Indication: MULTIPLE SCLEROSIS
     Dates: start: 20201210, end: 20210310

REACTIONS (7)
  - Injection site vasculitis [Unknown]
  - Drug hypersensitivity [Not Recovered/Not Resolved]
  - Vascular injury [Unknown]
  - Wrong technique in product usage process [Unknown]
  - Injection site necrosis [Unknown]
  - Embolia cutis medicamentosa [Recovering/Resolving]
  - Inflammatory marker increased [Unknown]

NARRATIVE: CASE EVENT DATE: 20210303
